FAERS Safety Report 7385356-2 (Version None)
Quarter: 2011Q1

REPORT INFORMATION
  Report Type: 
  Country: None (occurrence: None)
  Receive Date: 20110330
  Receipt Date: 20101018
  Transmission Date: 20110831
  Serious: No
  Sender: FDA-Public Use
  Company Number: US-MYLANLABS-2010S1019004

PATIENT
  Age: 57 Year
  Sex: Female

DRUGS (2)
  1. EMSAM [Suspect]
     Route: 062
     Dates: start: 20101004
  2. EMSAM [Suspect]
     Indication: DEPRESSION
     Route: 062
     Dates: start: 20100928, end: 20101003

REACTIONS (4)
  - CRYING [None]
  - DRUG INEFFECTIVE [None]
  - SUICIDAL IDEATION [None]
  - DEPRESSED MOOD [None]
